FAERS Safety Report 11676353 (Version 2)
Quarter: 2015Q4

REPORT INFORMATION
  Report Type: Spontaneous
  Country: AT (occurrence: AT)
  Receive Date: 20151028
  Receipt Date: 20151102
  Transmission Date: 20160304
  Serious: Yes (Death)
  Sender: FDA-Public Use
  Company Number: AT-TEVA-604655ISR

PATIENT

DRUGS (3)
  1. AMIODARONE [Interacting]
     Active Substance: AMIODARONE
  2. BISOPROLOL [Suspect]
     Active Substance: BISOPROLOL
  3. RIVAROXABAN [Interacting]
     Active Substance: RIVAROXABAN

REACTIONS (2)
  - Drug interaction [Fatal]
  - Cerebral haemorrhage [Fatal]
